FAERS Safety Report 5047190-8 (Version None)
Quarter: 2006Q2

REPORT INFORMATION
  Report Type: 
  Country: None (occurrence: None)
  Receive Date: 20060630
  Receipt Date: 20060619
  Transmission Date: 20061013
  Serious: Yes (Other)
  Sender: FDA-Public Use
  Company Number: CHNY2006DE01900

PATIENT
  Sex: Male

DRUGS (1)
  1. TAVEGYL               (CLEMASTINE HYDROGEN FUMARATE) [Suspect]
     Dosage: 1 MG, QD, ORAL
     Route: 048
     Dates: start: 20030101

REACTIONS (1)
  - VISUAL ACUITY REDUCED [None]
